FAERS Safety Report 26006962 (Version 1)
Quarter: 2025Q4

REPORT INFORMATION
  Report Type: Spontaneous
  Country: US (occurrence: None)
  Receive Date: 20251106
  Receipt Date: 20251106
  Transmission Date: 20260117
  Serious: Yes (Other)
  Sender: FDA-CTU
  Company Number: None

PATIENT
  Age: 57 Year
  Sex: Female
  Weight: 74.25 kg

DRUGS (5)
  1. ADVIL TARGETED RELIEF [Suspect]
     Active Substance: CAMPHOR (NATURAL)\CAPSAICIN\MENTHOL\METHYL SALICYLATE
     Indication: Pain in extremity
     Dates: start: 20251104, end: 20251105
  2. Amarodone [Concomitant]
  3. COREG [Concomitant]
     Active Substance: CARVEDILOL
  4. FISH OIL [Concomitant]
     Active Substance: FISH OIL
  5. glucosoimine [Concomitant]

REACTIONS (2)
  - Application site burn [None]
  - Chemical burn [None]

NARRATIVE: CASE EVENT DATE: 20251105
